FAERS Safety Report 14315369 (Version 1)
Quarter: 2017Q4

REPORT INFORMATION
  Report Type: Report from Study
  Country: US (occurrence: US)
  Receive Date: 20171221
  Receipt Date: 20171221
  Transmission Date: 20180321
  Serious: Yes (Other)
  Sender: FDA-Public Use
  Company Number: US-GILEAD-2017-0311895

PATIENT
  Sex: Male

DRUGS (2)
  1. LEDIPASVIR/SOFOSBUVIR [Suspect]
     Active Substance: LEDIPASVIR\SOFOSBUVIR
     Indication: CHRONIC HEPATITIS C
     Dosage: 1 DF, QD
     Route: 048
     Dates: start: 20150601, end: 20151222
  2. RIBAVIRIN. [Concomitant]
     Active Substance: RIBAVIRIN
     Indication: CHRONIC HEPATITIS C

REACTIONS (7)
  - Deafness [Not Recovered/Not Resolved]
  - Vision blurred [Unknown]
  - Confusional state [Unknown]
  - Coccidioidomycosis [Not Recovered/Not Resolved]
  - Balance disorder [Unknown]
  - Pneumothorax [Not Recovered/Not Resolved]
  - Dizziness [Unknown]
